FAERS Safety Report 5890671-5 (Version None)
Quarter: 2008Q3

REPORT INFORMATION
  Report Type: 
  Country: None (occurrence: None)
  Receive Date: 20080922
  Receipt Date: 20080905
  Transmission Date: 20090109
  Serious: Yes (Life-Threatening, Hospitalization, Other)
  Sender: FDA-Public Use
  Company Number: JP-BAYER-JP-2005-012299

PATIENT
  Age: 53 Year
  Sex: Male
  Weight: 52 kg

DRUGS (12)
  1. BETAFERON [Suspect]
     Indication: RELAPSING-REMITTING MULTIPLE SCLEROSIS
     Dosage: TOTAL DAILY DOSE: 8 MIU  UNIT DOSE: 9.6 MIU
     Route: 058
     Dates: start: 20001222, end: 20050623
  2. PREDONINE [Concomitant]
     Indication: RELAPSING-REMITTING MULTIPLE SCLEROSIS
     Route: 048
     Dates: start: 20001007, end: 20001221
  3. PREDONINE [Concomitant]
     Dosage: TOTAL DAILY DOSE: 5 MG  UNIT DOSE: 5 MG
     Route: 048
     Dates: start: 20001222, end: 20010903
  4. ALOSENN [Concomitant]
     Indication: DYSCHEZIA
     Dosage: UNIT DOSE: 0.5 G
     Route: 048
     Dates: start: 20050618, end: 20050624
  5. GABALON [Concomitant]
     Indication: SPASTIC PARALYSIS
     Dosage: UNIT DOSE: 15 MG
     Route: 048
     Dates: end: 20050624
  6. CONIEL [Concomitant]
     Indication: ESSENTIAL HYPERTENSION
     Dosage: UNIT DOSE: 8 MG
     Route: 048
     Dates: start: 20021127, end: 20050624
  7. SYMMETREL [Concomitant]
     Indication: MENTAL IMPAIRMENT
     Dosage: UNIT DOSE: 100 MG
     Route: 048
     Dates: start: 20050603, end: 20050624
  8. MUCOSTA [Concomitant]
     Indication: PROPHYLAXIS AGAINST GASTROINTESTINAL ULCER
     Dosage: UNIT DOSE: 300 MG
     Route: 048
     Dates: start: 20011226, end: 20050720
  9. RENIVACE [Concomitant]
     Indication: ESSENTIAL HYPERTENSION
     Dosage: UNIT DOSE: 5 MG
     Route: 048
     Dates: start: 20040107, end: 20050624
  10. NIVADIL [Concomitant]
     Indication: ESSENTIAL HYPERTENSION
     Dosage: UNIT DOSE: 8 MG
     Route: 048
     Dates: start: 20011222, end: 20021201
  11. PURSENNID [Concomitant]
     Indication: CONSTIPATION PROPHYLAXIS
     Dosage: UNIT DOSE: 24 MG
     Route: 048
     Dates: start: 20011228, end: 20021221
  12. PREDNISOLONE [Concomitant]
     Indication: SYSTEMIC LUPUS ERYTHEMATOSUS
     Dosage: TOTAL DAILY DOSE: 30 MG
     Route: 048
     Dates: start: 20050601, end: 20050720

REACTIONS (13)
  - ANAEMIA [None]
  - CYTOMEGALOVIRUS ANTIGEN POSITIVE [None]
  - DECREASED APPETITE [None]
  - DEHYDRATION [None]
  - DNA ANTIBODY POSITIVE [None]
  - HISTIOCYTOSIS HAEMATOPHAGIC [None]
  - INJECTION SITE CELLULITIS [None]
  - PLATELET COUNT DECREASED [None]
  - PYREXIA [None]
  - SERUM FERRITIN INCREASED [None]
  - SHOCK [None]
  - SYSTEMIC LUPUS ERYTHEMATOSUS [None]
  - WHITE BLOOD CELL COUNT DECREASED [None]
